FAERS Safety Report 8200029-1 (Version None)
Quarter: 2012Q1

REPORT INFORMATION
  Report Type: 
  Country: None (occurrence: None)
  Receive Date: 20120312
  Receipt Date: 20120305
  Transmission Date: 20120608
  Serious: No
  Sender: FDA-Public Use
  Company Number: US-PFIZER INC-2012059678

PATIENT
  Sex: Male

DRUGS (1)
  1. VFEND [Suspect]
     Indication: ACUTE MYELOID LEUKAEMIA
     Dosage: 1-200 MG BID
     Dates: start: 20111114

REACTIONS (1)
  - HEPATIC ENZYME INCREASED [None]
